FAERS Safety Report 6991714-8 (Version None)
Quarter: 2010Q3

REPORT INFORMATION
  Report Type: 
  Country: None (occurrence: None)
  Receive Date: 20100915
  Receipt Date: 20100915
  Transmission Date: 20110219
  Serious: Yes (Other)
  Sender: FDA-Public Use
  Company Number: None

PATIENT
  Age: 48 Year
  Sex: Female
  Weight: 77.1115 kg

DRUGS (2)
  1. VENLAFAXINE HCL EXTENDED-RELEASE [Suspect]
     Indication: DEPRESSION
     Dosage: 220 MG TOTAL DAILY PO
     Route: 048
     Dates: start: 20100908, end: 20100913
  2. VENLAFAXINE HCL EXTENDED-RELEASE [Suspect]

REACTIONS (6)
  - INSOMNIA [None]
  - MALAISE [None]
  - MYALGIA [None]
  - PRODUCT SUBSTITUTION ISSUE [None]
  - PRURITUS [None]
  - TACHYPHRENIA [None]
